FAERS Safety Report 9638282 (Version 2)
Quarter: 2013Q4

REPORT INFORMATION
  Report Type: Report from Study
  Country: US (occurrence: US)
  Receive Date: 20131022
  Receipt Date: 20131106
  Transmission Date: 20140711
  Serious: Yes (Hospitalization)
  Sender: FDA-Public Use
  Company Number: US-ACTELION-A-US2013-89884

PATIENT
  Age: 66 Year
  Sex: Female

DRUGS (1)
  1. TRACLEER [Suspect]
     Indication: PULMONARY ARTERIAL HYPERTENSION
     Dosage: UNK
     Route: 048

REACTIONS (17)
  - Pulmonary oedema [Recovering/Resolving]
  - Blood magnesium decreased [Recovering/Resolving]
  - Dehydration [Recovering/Resolving]
  - Blood sodium decreased [Recovering/Resolving]
  - Pulmonary hypertension [Unknown]
  - Oxygen saturation decreased [Unknown]
  - Cor pulmonale [Recovering/Resolving]
  - Fall [Recovering/Resolving]
  - Syncope [Recovering/Resolving]
  - Loss of consciousness [Recovering/Resolving]
  - Head injury [Recovering/Resolving]
  - Retinal tear [Recovering/Resolving]
  - Retinal detachment [Recovering/Resolving]
  - Concussion [Recovering/Resolving]
  - Metamorphopsia [Recovering/Resolving]
  - Nausea [Recovering/Resolving]
  - Malaise [Unknown]
